FAERS Safety Report 17872366 (Version 1)
Quarter: 2020Q2

REPORT INFORMATION
  Report Type: Spontaneous
  Country: US (occurrence: US)
  Receive Date: 20200608
  Receipt Date: 20200608
  Transmission Date: 20200714
  Serious: Yes (Other)
  Sender: FDA-Public Use
  Company Number: US-GILEAD-2020-0469297

PATIENT
  Age: 53 Year
  Sex: Male
  Weight: 98.9 kg

DRUGS (15)
  1. ENOXAPARIN BECAT [Concomitant]
  2. CEFTRIAXONE. [Concomitant]
     Active Substance: CEFTRIAXONE
  3. HYDROCORTISONE. [Concomitant]
     Active Substance: HYDROCORTISONE
  4. FENTANYL. [Concomitant]
     Active Substance: FENTANYL
  5. PROPOFOL. [Concomitant]
     Active Substance: PROPOFOL
  6. MIDAZOLAM. [Concomitant]
     Active Substance: MIDAZOLAM
  7. PHENYLEPHRINE [Concomitant]
     Active Substance: PHENYLEPHRINE HYDROCHLORIDE
  8. DOBUTAMINE [Concomitant]
     Active Substance: DOBUTAMINE HYDROCHLORIDE
  9. REMDESIVIR. [Suspect]
     Active Substance: REMDESIVIR
     Indication: COVID-19 PNEUMONIA
     Dosage: 200 MG, QD
     Route: 042
     Dates: start: 20200526, end: 20200527
  10. NOREPINEPHRINE. [Concomitant]
     Active Substance: NOREPINEPHRINE
  11. SODIUM BICARBONATE. [Concomitant]
     Active Substance: SODIUM BICARBONATE
  12. FAMOTIDINE. [Concomitant]
     Active Substance: FAMOTIDINE
  13. VASOPRESSIN. [Concomitant]
     Active Substance: VASOPRESSIN
  14. DOXYCYCLINE 3DDD [Concomitant]
  15. DIGOXIN. [Concomitant]
     Active Substance: DIGOXIN

REACTIONS (1)
  - Alanine aminotransferase increased [Not Recovered/Not Resolved]

NARRATIVE: CASE EVENT DATE: 20200527
